FAERS Safety Report 8921413 (Version 1)
Quarter: 2012Q4

REPORT INFORMATION
  Report Type: Report from Study
  Country: FR (occurrence: FR)
  Receive Date: 20121121
  Receipt Date: 20121121
  Transmission Date: 20130627
  Serious: Yes (Hospitalization)
  Sender: FDA-Public Use
  Company Number: FR-ROCHE-800418

PATIENT
  Age: 47 Year
  Sex: Female
  Weight: 56 kg

DRUGS (2)
  1. PEG-INTERFERON ALFA 2A [Suspect]
     Indication: HEPATITIS C
     Dosage: LAST DOSE PRIOR TO SAE: 17 AUGUST 2011, DOSE FORM : SC
     Route: 058
     Dates: start: 20110404, end: 20110819
  2. RIBAVIRIN [Suspect]
     Indication: HEPATITIS C
     Dosage: LAST DOSE PRIOR TO SAE: 18 AUGUST 2011
     Route: 048
     Dates: start: 20110406, end: 20110819

REACTIONS (2)
  - Confusional state [Recovered/Resolved]
  - Suicide attempt [Recovered/Resolved]
